FAERS Safety Report 8589424-9 (Version None)
Quarter: 2012Q3

REPORT INFORMATION
  Report Type: 
  Country: None (occurrence: None)
  Receive Date: 20120813
  Receipt Date: 20120802
  Transmission Date: 20120928
  Serious: Yes (Hospitalization, Other)
  Sender: FDA-Public Use
  Company Number: JP-ASTRAZENECA-2012SE27145

PATIENT
  Age: 29 Year
  Sex: Male
  Weight: 64.2 kg

DRUGS (7)
  1. SEROQUEL [Suspect]
     Indication: SCHIZOPHRENIA
     Dosage: 100 MG AT 7 TABLETS 1-1-2-3 AND 25 MG 2 TABLETS BEFORE BEDTIME TOTAL DOSE 750 MG DAILY
     Route: 048
  2. DANTRIUM [Concomitant]
  3. SEROQUEL [Suspect]
     Dosage: 10 DAY DOSES AT ONCE
     Route: 048
  4. CALCIUM CARBONATE [Suspect]
     Indication: RENAL DISORDER
     Route: 048
     Dates: start: 20120507, end: 20120515
  5. RISPERDAL [Concomitant]
     Indication: SCHIZOPHRENIA
     Route: 048
     Dates: start: 20120518
  6. KALIAID [Concomitant]
     Indication: RENAL DISORDER
     Dates: start: 20120426, end: 20120507
  7. SEROQUEL [Suspect]
     Route: 048

REACTIONS (5)
  - DEPRESSED LEVEL OF CONSCIOUSNESS [None]
  - NEUROLEPTIC MALIGNANT SYNDROME [None]
  - OVERDOSE [None]
  - RENAL DISORDER [None]
  - HYPOXIC-ISCHAEMIC ENCEPHALOPATHY [None]
